FAERS Safety Report 10079790 (Version 1)
Quarter: 2014Q2

REPORT INFORMATION
  Report Type: Spontaneous
  Country: US (occurrence: US)
  Receive Date: 20140415
  Receipt Date: 20140415
  Transmission Date: 20141212
  Serious: No
  Sender: FDA-Public Use
  Company Number: US-009507513-1403USA005325

PATIENT
  Age: 37 Year
  Sex: Female
  Weight: 68.27 kg

DRUGS (2)
  1. MIRALAX [Suspect]
     Indication: HAEMORRHOID OPERATION
     Dosage: 8.5 G, QD
     Route: 048
     Dates: start: 201401
  2. MIRALAX [Suspect]
     Indication: FAECES HARD

REACTIONS (3)
  - Underdose [Unknown]
  - Incorrect drug administration duration [Unknown]
  - Product odour abnormal [Unknown]
